FAERS Safety Report 7806482-7 (Version None)
Quarter: 2011Q4

REPORT INFORMATION
  Report Type: 
  Country: None (occurrence: None)
  Receive Date: 20111007
  Receipt Date: 20111007
  Transmission Date: 20120403
  Serious: No
  Sender: FDA-Public Use
  Company Number: None

PATIENT
  Sex: Male

DRUGS (1)
  1. ENBREL [Suspect]
     Indication: PSORIATIC ARTHROPATHY
     Dosage: 50MG QW SQ
     Route: 058
     Dates: start: 20110722

REACTIONS (7)
  - NAUSEA [None]
  - DYSPNOEA [None]
  - INFLUENZA [None]
  - DIZZINESS [None]
  - LUNG NEOPLASM [None]
  - CONFUSIONAL STATE [None]
  - ASTHENIA [None]
